FAERS Safety Report 12215563 (Version 1)
Quarter: 2016Q1

REPORT INFORMATION
  Report Type: Spontaneous
  Country: US (occurrence: US)
  Receive Date: 20160328
  Receipt Date: 20160328
  Transmission Date: 20160526
  Serious: Yes (Other)
  Sender: FDA-Public Use
  Company Number: US-SUCAMPO PHARMACEUTICALS, INC.-SPI201600259

PATIENT
  Age: 43 Year
  Sex: Female
  Weight: 52.15 kg

DRUGS (4)
  1. AMITIZA [Suspect]
     Active Substance: LUBIPROSTONE
     Indication: IRRITABLE BOWEL SYNDROME
     Dosage: 24 MCG, BID
     Route: 048
  2. VALIUM [Concomitant]
     Active Substance: DIAZEPAM
     Indication: ANXIETY
     Dosage: UNK, PRN
     Route: 048
  3. WATER PILL [Concomitant]
     Active Substance: UNSPECIFIED INGREDIENT
     Indication: DIURETIC THERAPY
     Dosage: UNK, QD
     Route: 048
  4. UNKNOWN [Concomitant]
     Active Substance: UNSPECIFIED INGREDIENT
     Indication: PAIN
     Dosage: 10/325, PRN
     Route: 048

REACTIONS (3)
  - Hysterosalpingo-oophorectomy [Recovered/Resolved]
  - Appendicectomy [Recovered/Resolved]
  - Salpingo-oophorectomy unilateral [Recovered/Resolved]

NARRATIVE: CASE EVENT DATE: 201502
